FAERS Safety Report 23772024 (Version 1)
Quarter: 2024Q2

REPORT INFORMATION
  Report Type: Spontaneous
  Country: CN (occurrence: None)
  Receive Date: 20240423
  Receipt Date: 20240423
  Transmission Date: 20240715
  Serious: Yes (Other)
  Sender: FDA-Public Use
  Company Number: CN-ROCHE-3545944

PATIENT
  Age: 51 Year
  Sex: Female
  Weight: 64 kg

DRUGS (3)
  1. TECENTRIQ [Suspect]
     Active Substance: ATEZOLIZUMAB
     Indication: Lung adenocarcinoma stage IV
     Dosage: D1,27-APR-2023,18-MAY-2023,09-JUN-2023,10-JUL-2023,15-AUG-2023,04-SEP-2023, 19/OCT/2023
     Route: 041
     Dates: start: 20230427
  2. PEMETREXED DISODIUM [Concomitant]
     Active Substance: PEMETREXED DISODIUM
     Indication: Lung adenocarcinoma stage IV
     Dosage: D1,27-APR-2023,18-MAY-2023,09-JUN-2023,10-JUL-2023,15-AUG-2023,04-SEP-2023
     Dates: start: 20230427
  3. CARBOPLATIN [Concomitant]
     Active Substance: CARBOPLATIN
     Indication: Lung adenocarcinoma stage IV
     Dosage: D1,27-APR-2023,18-MAY-2023,09-JUN-2023,10-JUL-2023,15-AUG-2023,04-SEP-2023
     Dates: start: 20230427

REACTIONS (2)
  - Myelosuppression [Unknown]
  - Hypothyroidism [Unknown]

NARRATIVE: CASE EVENT DATE: 20230726
